FAERS Safety Report 6790263-X (Version None)
Quarter: 2010Q2

REPORT INFORMATION
  Report Type: 
  Country: None (occurrence: None)
  Receive Date: 20100624
  Receipt Date: 20100621
  Transmission Date: 20101027
  Serious: Yes (Death)
  Sender: FDA-Public Use
  Company Number: KR-ASTRAZENECA-2010SE28732

PATIENT
  Age: 29393 Day
  Sex: Female

DRUGS (1)
  1. IRESSA [Suspect]
     Indication: NON-SMALL CELL LUNG CANCER
     Route: 048
     Dates: start: 20060605

REACTIONS (2)
  - MALIGNANT PLEURAL EFFUSION [None]
  - RESPIRATORY FAILURE [None]
